FAERS Safety Report 17533584 (Version 5)
Quarter: 2021Q3

REPORT INFORMATION
  Report Type: Report from Study
  Country: CO (occurrence: CO)
  Receive Date: 20200312
  Receipt Date: 20210907
  Transmission Date: 20211014
  Serious: Yes (Other)
  Sender: FDA-Public Use
  Company Number: NVSC2020CO069316

PATIENT
  Sex: Male
  Weight: 72 kg

DRUGS (3)
  1. SANDOSTATIN LAR DEPOT [Suspect]
     Active Substance: OCTREOTIDE ACETATE
     Dosage: UNK, QD (AMPOULE)
     Route: 030
  2. SANDOSTATIN LAR DEPOT [Suspect]
     Active Substance: OCTREOTIDE ACETATE
     Indication: GASTROENTEROPANCREATIC NEUROENDOCRINE TUMOUR DISEASE
     Dosage: 20 MG, QMO (10 YEARS AGO)
     Route: 030
  3. SANDOSTATIN LAR DEPOT [Suspect]
     Active Substance: OCTREOTIDE ACETATE
     Dosage: 30 MG, QMO (EVERY 28 DAYS)
     Route: 030

REACTIONS (7)
  - Gastrointestinal wall thickening [Unknown]
  - Mass [Unknown]
  - Headache [Unknown]
  - Metastasis [Unknown]
  - Small intestine carcinoma [Unknown]
  - Impaired healing [Unknown]
  - Skin disorder [Unknown]
